FAERS Safety Report 7972208-X (Version None)
Quarter: 2011Q4

REPORT INFORMATION
  Report Type: 
  Country: None (occurrence: None)
  Receive Date: 20111212
  Receipt Date: 20111201
  Transmission Date: 20120403
  Serious: Yes (Other)
  Sender: FDA-Public Use
  Company Number: JP-ELI_LILLY_AND_COMPANY-JP201108002199

PATIENT
  Age: 65 Year
  Sex: Female

DRUGS (2)
  1. FORTEO [Suspect]
     Dosage: UNK
     Route: 058
     Dates: start: 20110430, end: 20110430
  2. FORTEO [Suspect]
     Dosage: UNK
     Route: 058
     Dates: start: 20110509, end: 20111130

REACTIONS (2)
  - HIP SURGERY [None]
  - NASOPHARYNGITIS [None]
